FAERS Safety Report 5367612-2 (Version None)
Quarter: 2007Q2

REPORT INFORMATION
  Report Type: 
  Country: None (occurrence: None)
  Receive Date: 20070622
  Receipt Date: 20070614
  Transmission Date: 20071010
  Serious: Yes (Other)
  Sender: FDA-Public Use
  Company Number: FR-BRISTOL-MYERS SQUIBB COMPANY-13822531

PATIENT
  Age: 70 Year
  Sex: Female

DRUGS (3)
  1. ENDOXAN [Suspect]
     Indication: VASCULITIS
     Dates: start: 20070601, end: 20070602
  2. UROMITEXAN [Suspect]
     Indication: VASCULITIS
     Dates: start: 20070601
  3. OSTRAM [Concomitant]

REACTIONS (1)
  - PANCREATITIS ACUTE [None]
